FAERS Safety Report 18466815 (Version 1)
Quarter: 2020Q4

REPORT INFORMATION
  Report Type: Spontaneous
  Country: GB (occurrence: GB)
  Receive Date: 20201105
  Receipt Date: 20201105
  Transmission Date: 20210114
  Serious: Yes (Other)
  Sender: FDA-Public Use
  Company Number: GB-ACCORD-207423

PATIENT
  Age: 38 Year
  Sex: Female

DRUGS (4)
  1. SERTRALINE [Suspect]
     Active Substance: SERTRALINE HYDROCHLORIDE
     Indication: ANXIETY
     Route: 048
  2. IBUPROFEN. [Concomitant]
     Active Substance: IBUPROFEN
  3. IRON [Interacting]
     Active Substance: IRON
     Indication: MENORRHAGIA
  4. LORATADINE. [Concomitant]
     Active Substance: LORATADINE

REACTIONS (6)
  - Cold sweat [Unknown]
  - Nausea [Recovered/Resolved]
  - Feeling cold [Unknown]
  - Palpitations [Recovered/Resolved]
  - Drug interaction [Unknown]
  - Gastrointestinal pain [Recovered/Resolved]
